FAERS Safety Report 10364443 (Version 1)
Quarter: 2014Q3

REPORT INFORMATION
  Report Type: Spontaneous
  Country: US (occurrence: None)
  Receive Date: 20140805
  Receipt Date: 20140805
  Transmission Date: 20150326
  Serious: Yes (Death, Life-Threatening)
  Sender: FDA-Public Use
  Company Number: None

PATIENT
  Age: 83 Year
  Sex: Female
  Weight: 43.55 kg

DRUGS (17)
  1. ANTACED [Concomitant]
  2. LIPITOR [Concomitant]
     Active Substance: ATORVASTATIN CALCIUM
  3. PRILOSEC [Concomitant]
     Active Substance: OMEPRAZOLE MAGNESIUM
  4. MIRTAZEPINE [Concomitant]
  5. ULTRAM [Concomitant]
     Active Substance: TRAMADOL HYDROCHLORIDE
  6. ARTIFICAL TEARS [Concomitant]
     Active Substance: GLYCERIN\HYPROMELLOSE 2910 (15 MPA.S)\POLYETHYLENE GLYCOL 400\PROPYLENE GLYCOL
  7. BENADRYL [Concomitant]
     Active Substance: DIPHENHYDRAMINE HYDROCHLORIDE
  8. GUAIFENESIN. [Concomitant]
     Active Substance: GUAIFENESIN
  9. XARELTO [Concomitant]
     Active Substance: RIVAROXABAN
  10. VANCOMYCIN [Suspect]
     Active Substance: VANCOMYCIN
     Indication: WOUND INFECTION BACTERIAL
     Dosage: STARTED 1GM IV THEN TITRATED TO 500 MG Q 48 HRS TO KEEP THROUGH LEVEL 8.1 TO 13 MCG/ML
     Route: 042
     Dates: start: 20140620, end: 20140706
  11. TYLENOL [Concomitant]
     Active Substance: ACETAMINOPHEN
  12. ENSURE [Concomitant]
     Active Substance: AMINO ACIDS\DEXTROSE\ELECTROLYTES NOS\SOYBEAN OIL\VITAMINS
  13. COLACE [Concomitant]
     Active Substance: DOCUSATE SODIUM
  14. CHLORISEPTIC THROAT SPRAY [Concomitant]
  15. VANCOMYCIN [Suspect]
     Active Substance: VANCOMYCIN
     Indication: ENTEROCOCCAL INFECTION
     Dosage: STARTED 1GM IV THEN TITRATED TO 500 MG Q 48 HRS TO KEEP THROUGH LEVEL 8.1 TO 13 MCG/ML
     Route: 042
     Dates: start: 20140620, end: 20140706
  16. AMIODARONE [Concomitant]
     Active Substance: AMIODARONE
  17. FLOVASTOR [Concomitant]

REACTIONS (2)
  - Deep vein thrombosis [None]
  - Thrombocytopenia [None]

NARRATIVE: CASE EVENT DATE: 20140715
